FAERS Safety Report 7483025-1 (Version None)
Quarter: 2011Q2

REPORT INFORMATION
  Report Type: 
  Country: None (occurrence: None)
  Receive Date: 20110516
  Receipt Date: 20081006
  Transmission Date: 20111010
  Serious: Yes (Death, Other)
  Sender: FDA-Public Use
  Company Number: US-BAYER-200835188NA

PATIENT
  Age: 70 Year
  Sex: Male
  Weight: 92.971 kg

DRUGS (10)
  1. TRASYLOL [Suspect]
     Indication: CORONARY ARTERY BYPASS
  2. NORVASC [Concomitant]
     Dosage: 10 MG, BID
     Route: 048
  3. TRASYLOL [Suspect]
     Indication: CARDIAC OPERATION
     Dosage: TEST DOSE: 200ML PRIME VIA CARDIOPULMONARY BYPASS NOTED TO HAVE TRASYLOL INFUSING.
     Route: 042
     Dates: start: 20051031, end: 20051031
  4. RED BLOOD CELLS [Concomitant]
     Dosage: 2 UNITS
     Route: 042
     Dates: start: 20051031
  5. ZOCOR [Concomitant]
     Dosage: 20 MG, QD
     Route: 048
  6. MILRINONE [Concomitant]
     Dosage: 375MG
     Route: 042
     Dates: start: 20051031
  7. ALBUMIN (HUMAN) [Concomitant]
     Dosage: 12.5 GRAMS
     Route: 042
     Dates: start: 20051031
  8. HEPARIN [Concomitant]
     Dosage: 10,000 UNITS
     Route: 042
     Dates: start: 20051031
  9. MANNITOL [Concomitant]
     Dosage: 25 GRAMS
     Route: 042
     Dates: start: 20051031
  10. FENTANYL [Concomitant]
     Dosage: MULTIPLE DOSES
     Route: 042
     Dates: start: 20051031

REACTIONS (9)
  - RENAL FAILURE [None]
  - INJURY [None]
  - PAIN [None]
  - ANXIETY [None]
  - DEATH [None]
  - UNEVALUABLE EVENT [None]
  - FEAR [None]
  - ANHEDONIA [None]
  - DEPRESSION [None]
